FAERS Safety Report 9324989 (Version 2)
Quarter: 2013Q2

REPORT INFORMATION
  Report Type: Spontaneous
  Country: FR (occurrence: FR)
  Receive Date: 20130603
  Receipt Date: 20130626
  Transmission Date: 20140414
  Serious: Yes (Hospitalization)
  Sender: FDA-Public Use
  Company Number: FR-ABBOTT-13P-056-1096953-00

PATIENT
  Age: 84 Year
  Sex: Male

DRUGS (3)
  1. ENANTONE LP 11.25 MG PREP INJ [Suspect]
     Indication: PROSTATE CANCER
     Route: 065
     Dates: start: 20120512, end: 20130209
  2. CASODEX [Concomitant]
     Indication: PROSTATE CANCER
     Route: 048
     Dates: start: 20120512, end: 20130209
  3. SECALIP [Concomitant]
     Indication: HYPERCHOLESTEROLAEMIA
     Route: 048
     Dates: start: 20121024

REACTIONS (4)
  - Cardiac failure [Recovered/Resolved]
  - Oedema peripheral [Recovered/Resolved with Sequelae]
  - Pleural effusion [Recovered/Resolved with Sequelae]
  - Dyspnoea [Recovered/Resolved with Sequelae]
